FAERS Safety Report 21861216 (Version 2)
Quarter: 2023Q1

REPORT INFORMATION
  Report Type: Report from Study
  Country: US (occurrence: US)
  Receive Date: 20230113
  Receipt Date: 20230128
  Transmission Date: 20230418
  Serious: No
  Sender: FDA-Public Use
  Company Number: US-ABBVIE-4269444

PATIENT
  Age: 61 Year
  Sex: Female

DRUGS (1)
  1. IMBRUVICA [Suspect]
     Active Substance: IBRUTINIB
     Indication: Lymphocytic leukaemia
     Route: 048
     Dates: start: 20230104

REACTIONS (8)
  - Constipation [Unknown]
  - Dizziness [Unknown]
  - Nausea [Unknown]
  - Abdominal pain upper [Unknown]
  - Malaise [Unknown]
  - Palpitations [Unknown]
  - Cardiac flutter [Unknown]
  - Gait disturbance [Unknown]

NARRATIVE: CASE EVENT DATE: 20230110
